FAERS Safety Report 12724337 (Version 1)
Quarter: 2016Q3

REPORT INFORMATION
  Report Type: Spontaneous
  Country: US (occurrence: US)
  Receive Date: 20160908
  Receipt Date: 20160908
  Transmission Date: 20161109
  Serious: Yes (Hospitalization, Other)
  Sender: FDA-Public Use
  Company Number: US-BRISTOL-MYERS SQUIBB COMPANY-BMS-2016-072505

PATIENT
  Sex: Female

DRUGS (1)
  1. OPDIVO [Suspect]
     Active Substance: NIVOLUMAB
     Indication: METASTATIC MALIGNANT MELANOMA
     Dosage: UNK
     Route: 065
     Dates: start: 201510

REACTIONS (8)
  - Pyrexia [Unknown]
  - Hypothalamo-pituitary disorder [Unknown]
  - Colitis [Unknown]
  - Hepatitis [Unknown]
  - Rash pruritic [Unknown]
  - Pneumonitis [Unknown]
  - Diarrhoea [Unknown]
  - Headache [Unknown]
